FAERS Safety Report 14142549 (Version 2)
Quarter: 2017Q4

REPORT INFORMATION
  Report Type: Spontaneous
  Country: DE (occurrence: DE)
  Receive Date: 20171030
  Receipt Date: 20171225
  Transmission Date: 20180321
  Serious: Yes (Other)
  Sender: FDA-Public Use
  Company Number: DE-AMGEN-DEUSP2017161445

PATIENT
  Age: 63 Year
  Sex: Female

DRUGS (1)
  1. PROLIA [Suspect]
     Active Substance: DENOSUMAB
     Indication: PRODUCT USED FOR UNKNOWN INDICATION
     Dosage: UNK
     Route: 065

REACTIONS (7)
  - Cystitis [Unknown]
  - Oropharyngeal pain [Unknown]
  - Trigeminal neuralgia [Unknown]
  - Pain in jaw [Unknown]
  - Nasopharyngitis [Unknown]
  - Nephritis [Unknown]
  - Pyrexia [Unknown]

NARRATIVE: CASE EVENT DATE: 201710
